FAERS Safety Report 6974524-7 (Version None)
Quarter: 2010Q3

REPORT INFORMATION
  Report Type: 
  Country: None (occurrence: None)
  Receive Date: 20100909
  Receipt Date: 20080916
  Transmission Date: 20110219
  Serious: No
  Sender: FDA-Public Use
  Company Number: US-WYE-H06017208

PATIENT
  Age: 55 Year
  Sex: Male

DRUGS (2)
  1. PROTONIX [Suspect]
     Dosage: UNKNOWN
  2. MAALOX [Interacting]
     Dosage: 1-2 TABLETS EVERY 4-6 HOURS
     Route: 048
     Dates: start: 20080805, end: 20080811

REACTIONS (4)
  - DIZZINESS [None]
  - DRUG INTERACTION [None]
  - HYPERSENSITIVITY [None]
  - PRESYNCOPE [None]
